FAERS Safety Report 4316300-X (Version None)
Quarter: 2004Q1

REPORT INFORMATION
  Report Type: 
  Country: None (occurrence: None)
  Receive Date: 20040311
  Receipt Date: 20040227
  Transmission Date: 20041129
  Serious: Yes (Death, Hospitalization)
  Sender: FDA-Public Use
  Company Number: HQWYE442127FEB04

PATIENT
  Age: 74 Year
  Sex: Male

DRUGS (5)
  1. CORDARONE [Suspect]
     Indication: ARRHYTHMIA
     Dosage: 200 MG 1X PER 1 DAY ORAL
     Route: 048
     Dates: start: 20000615, end: 20031212
  2. CORVASAL (MOLSIDOMINE) [Concomitant]
  3. LASIX [Concomitant]
  4. LIPANOR (CIPROFIBRATE) [Concomitant]
  5. KARDEGIC (ACETYLSALICYLATE LYSINE) [Concomitant]

REACTIONS (6)
  - CYTOMEGALOVIRUS TEST POSITIVE [None]
  - EPSTEIN-BARR VIRUS INFECTION [None]
  - HAEMORRHAGE [None]
  - HEPATITIS A [None]
  - HEPATITIS FULMINANT [None]
  - PNEUMONITIS [None]
